FAERS Safety Report 5805735-1 (Version None)
Quarter: 2008Q3

REPORT INFORMATION
  Report Type: 
  Country: None (occurrence: None)
  Receive Date: 20080702
  Receipt Date: 20070719
  Transmission Date: 20090109
  Serious: Yes (Other)
  Sender: FDA-Public Use
  Company Number: 2004-BP-13392BP

PATIENT
  Age: 44 Year
  Sex: Female

DRUGS (6)
  1. MIRAPEX [Suspect]
     Indication: PARKINSON'S DISEASE
     Dosage: PO ; (VARYING DOSAGE)
     Route: 048
     Dates: start: 20040901
  2. AMANTADINE HCL [Concomitant]
  3. ELDEPRYL [Concomitant]
  4. SINEMET [Concomitant]
  5. SINEMET CR [Concomitant]
  6. STALEVO (STALEVO) [Concomitant]

REACTIONS (3)
  - FEELING OF DESPAIR [None]
  - INSOMNIA [None]
  - PATHOLOGICAL GAMBLING [None]
